FAERS Safety Report 10714539 (Version 3)
Quarter: 2015Q2

REPORT INFORMATION
  Report Type: Report from Study
  Country: ID (occurrence: ID)
  Receive Date: 20150115
  Receipt Date: 20150603
  Transmission Date: 20150821
  Serious: Yes (Hospitalization)
  Sender: FDA-Public Use
  Company Number: ID-BAYER-2014-170387

PATIENT
  Age: 55 Year
  Sex: Male

DRUGS (7)
  1. NEXAVAR [Suspect]
     Active Substance: SORAFENIB
     Indication: RENAL CELL CARCINOMA STAGE IV
     Dosage: UNK
     Route: 048
     Dates: start: 20141205, end: 20141220
  2. NEXAVAR [Suspect]
     Active Substance: SORAFENIB
     Indication: RENAL CELL CARCINOMA STAGE IV
     Dosage: 600MG, DAILY
     Route: 048
     Dates: start: 20140204, end: 20141107
  3. PARACETAMOL [Concomitant]
     Active Substance: ACETAMINOPHEN
  4. CIPROFLOXACIN. [Concomitant]
     Active Substance: CIPROFLOXACIN
  5. CODEINE [Concomitant]
     Active Substance: CODEINE
  6. VITAMIN K [Concomitant]
     Active Substance: PHYTONADIONE
  7. NEXAVAR [Suspect]
     Active Substance: SORAFENIB
     Indication: METASTASES TO LUNG
     Dosage: 400 MG, QD
     Route: 048
     Dates: start: 20141114, end: 20141121

REACTIONS (12)
  - Ulcer [Not Recovered/Not Resolved]
  - Skin ulcer [Not Recovered/Not Resolved]
  - Oedema peripheral [None]
  - Multi-organ failure [None]
  - Face oedema [None]
  - Palmar-plantar erythrodysaesthesia syndrome [None]
  - Dizziness [None]
  - Abscess [Recovered/Resolved]
  - Dyspnoea [None]
  - Anaemia [None]
  - Fatigue [None]
  - Cough [None]

NARRATIVE: CASE EVENT DATE: 20140328
